FAERS Safety Report 10329588 (Version 2)
Quarter: 2014Q3

REPORT INFORMATION
  Report Type: Spontaneous
  Country: GB (occurrence: GB)
  Receive Date: 20140721
  Receipt Date: 20140722
  Transmission Date: 20150326
  Serious: Yes (Life-Threatening, Hospitalization, Other)
  Sender: FDA-Public Use
  Company Number: GB-PFIZER INC-2014202112

PATIENT
  Age: 36 Year
  Sex: Female
  Weight: 59.87 kg

DRUGS (1)
  1. CHAMPIX [Suspect]
     Active Substance: VARENICLINE TARTRATE
     Indication: SMOKING CESSATION THERAPY
     Dosage: 2 DF, 1X/DAY
     Route: 048
     Dates: start: 20100528, end: 20100730

REACTIONS (5)
  - Abnormal dreams [Unknown]
  - Irritability [Unknown]
  - Dehydration [Unknown]
  - Malaise [Unknown]
  - Breast cancer [Unknown]

NARRATIVE: CASE EVENT DATE: 20130402
